FAERS Safety Report 23332184 (Version 2)
Quarter: 2024Q1

REPORT INFORMATION
  Report Type: Spontaneous
  Country: US (occurrence: US)
  Receive Date: 20231222
  Receipt Date: 20240105
  Transmission Date: 20240410
  Serious: Yes (Other)
  Sender: FDA-Public Use
  Company Number: US-PFIZER INC-PV202300205071

PATIENT
  Age: 58 Year
  Sex: Male
  Weight: 59.1 kg

DRUGS (1)
  1. INLYTA [Suspect]
     Active Substance: AXITINIB
     Indication: Metastatic renal cell carcinoma
     Dosage: 5 MG, 2X/DAY, 1 TAB Q12
     Route: 048

REACTIONS (2)
  - Deep vein thrombosis [Unknown]
  - Neoplasm progression [Unknown]
